FAERS Safety Report 5222991-1 (Version None)
Quarter: 2007Q1

REPORT INFORMATION
  Report Type: 
  Country: None (occurrence: None)
  Receive Date: 20061201
  Receipt Date: 20060707
  Transmission Date: 20070707
  Serious: No
  Sender: FDA-Public Use
  Company Number: 2006PV017220

PATIENT
  Age: 57 Year
  Sex: Female
  Weight: 115.6672 kg

DRUGS (9)
  1. BYETTA [Suspect]
     Indication: DIABETES MELLITUS NON-INSULIN-DEPENDENT
     Dosage: SEE IMAGE
     Route: 058
     Dates: start: 20060627, end: 20060727
  2. BYETTA [Suspect]
     Indication: DIABETES MELLITUS NON-INSULIN-DEPENDENT
     Dosage: SEE IMAGE
     Route: 058
     Dates: start: 20060728, end: 20060811
  3. BYETTA [Suspect]
     Indication: DIABETES MELLITUS NON-INSULIN-DEPENDENT
     Dosage: SEE IMAGE
     Route: 058
     Dates: start: 20060814
  4. BYETTA [Suspect]
  5. METFORMIN HCL [Concomitant]
  6. GLYBURIDE [Concomitant]
  7. ACTOS [Concomitant]
  8. GLUCOPHAGE [Concomitant]
  9. NOVOLOG [Concomitant]

REACTIONS (12)
  - ANOREXIA [None]
  - ASTHENIA [None]
  - DYSGEUSIA [None]
  - DYSURIA [None]
  - FEELING ABNORMAL [None]
  - INSOMNIA [None]
  - MEDICATION ERROR [None]
  - MICTURITION URGENCY [None]
  - NAUSEA [None]
  - URINE ODOUR ABNORMAL [None]
  - VOMITING [None]
  - WEIGHT DECREASED [None]
